FAERS Safety Report 7150080-8 (Version None)
Quarter: 2010Q4

REPORT INFORMATION
  Report Type: 
  Country: None (occurrence: None)
  Receive Date: 20101210
  Receipt Date: 20101202
  Transmission Date: 20110411
  Serious: Yes (Other)
  Sender: FDA-Public Use
  Company Number: AU-PFIZER INC-2010102900

PATIENT
  Age: 75 Year
  Sex: Female
  Weight: 53 kg

DRUGS (6)
  1. LIPITOR [Suspect]
     Indication: HYPERCHOLESTEROLAEMIA
     Dosage: 20 MG, 1X/DAY
     Route: 048
     Dates: start: 20071101, end: 20080301
  2. LIPITOR [Suspect]
     Indication: MYOCARDIAL ISCHAEMIA
     Dosage: 40 MG, 1X/DAY
     Route: 048
     Dates: start: 20080301, end: 20100115
  3. BICOR [Concomitant]
     Indication: MYOCARDIAL ISCHAEMIA
     Dosage: 1.25 MG, 2X/DAY
     Route: 048
     Dates: start: 20071201
  4. CARTIA XT [Concomitant]
     Indication: MYOCARDIAL ISCHAEMIA
     Dosage: 100 MG, 1X/DAY
     Route: 048
     Dates: start: 20071201
  5. PARIET [Concomitant]
     Indication: REFLUX GASTRITIS
     Dosage: 20 MG, 1X/DAY
     Route: 048
     Dates: start: 20060201
  6. TRITACE [Concomitant]
     Indication: MYOCARDIAL ISCHAEMIA
     Dosage: 1.25 MG, 1X/DAY
     Route: 048
     Dates: start: 20071201

REACTIONS (5)
  - ALANINE AMINOTRANSFERASE INCREASED [None]
  - ASPARTATE AMINOTRANSFERASE INCREASED [None]
  - GAMMA-GLUTAMYLTRANSFERASE INCREASED [None]
  - HEPATIC CYST [None]
  - LIVER FUNCTION TEST ABNORMAL [None]
